FAERS Safety Report 5229718-8 (Version None)
Quarter: 2007Q1

REPORT INFORMATION
  Report Type: 
  Country: None (occurrence: None)
  Receive Date: 20070206
  Receipt Date: 20070130
  Transmission Date: 20070707
  Serious: Yes (Other)
  Sender: FDA-Public Use
  Company Number: ES-PFIZER INC-2007007671

PATIENT
  Age: 42 Year
  Sex: Male
  Weight: 124 kg

DRUGS (6)
  1. GENOTROPIN [Suspect]
     Indication: HYPOPITUITARISM
     Route: 058
     Dates: start: 20050524, end: 20060915
  2. PREDNISONE [Concomitant]
  3. CARDURAN NEO [Concomitant]
  4. OMEPRAZOLE [Concomitant]
  5. EUTIROX [Concomitant]
  6. ENALAPRIL MALEATE AND HYDROCHLOROTHIAZIDE [Concomitant]

REACTIONS (1)
  - BRAIN NEOPLASM [None]
